FAERS Safety Report 8477447-X (Version None)
Quarter: 2012Q2

REPORT INFORMATION
  Report Type: 
  Country: None (occurrence: None)
  Receive Date: 20120629
  Receipt Date: 20120627
  Transmission Date: 20120825
  Serious: Yes (Other)
  Sender: FDA-Public Use
  Company Number: PHHY2012BR054129

PATIENT
  Age: 34 Year
  Sex: Female

DRUGS (1)
  1. TRILEPTAL [Suspect]
     Indication: EPILEPSY
     Dosage: 900 MG, (1 TABLET AND HALF OF 600 MG)

REACTIONS (4)
  - MALAISE [None]
  - MENTAL DISORDER [None]
  - DIZZINESS [None]
  - SPEECH DISORDER [None]
